FAERS Safety Report 14179842 (Version 1)
Quarter: 2017Q4

REPORT INFORMATION
  Report Type: Spontaneous
  Country: GB (occurrence: GB)
  Receive Date: 20171110
  Receipt Date: 20171110
  Transmission Date: 20180321
  Serious: Yes (Other)
  Sender: FDA-Public Use
  Company Number: GB-BAUSCH-BL-2017-031110

PATIENT
  Age: 49 Year
  Sex: Female
  Weight: 119.3 kg

DRUGS (2)
  1. SERTRALINE HYDROCHLORIDE. [Concomitant]
     Active Substance: SERTRALINE HYDROCHLORIDE
     Indication: PRODUCT USED FOR UNKNOWN INDICATION
  2. MOVIPREP [Suspect]
     Active Substance: ASCORBIC ACID\POLYETHYLENE GLYCOL 3350\POTASSIUM CHLORIDE\SODIUM ASCORBATE\SODIUM CHLORIDE\SODIUM SULFATE
     Indication: BOWEL PREPARATION
     Route: 048
     Dates: start: 20171025, end: 20171025

REACTIONS (4)
  - Pruritus generalised [Recovering/Resolving]
  - Burning sensation [Recovering/Resolving]
  - Throat irritation [Unknown]
  - Ear discomfort [Unknown]

NARRATIVE: CASE EVENT DATE: 20171025
